FAERS Safety Report 4471293-X (Version None)
Quarter: 2004Q4

REPORT INFORMATION
  Report Type: 
  Country: None (occurrence: None)
  Receive Date: 20041011
  Receipt Date: 20041004
  Transmission Date: 20050328
  Serious: Yes (Hospitalization, Other)
  Sender: FDA-Public Use
  Company Number: US-MERCK-0410USA00559

PATIENT
  Age: 78 Year
  Sex: Female

DRUGS (4)
  1. CITRICAL [Concomitant]
     Route: 065
  2. PLAVIX [Concomitant]
     Route: 065
  3. VIOXX [Suspect]
     Indication: ARTHRITIS
     Route: 048
     Dates: end: 20040901
  4. DIOVAN [Concomitant]
     Route: 065

REACTIONS (2)
  - COLON CANCER [None]
  - TRANSIENT ISCHAEMIC ATTACK [None]
